FAERS Safety Report 10527689 (Version 1)
Quarter: 2014Q4

REPORT INFORMATION
  Report Type: Spontaneous
  Country: US (occurrence: US)
  Receive Date: 20141020
  Receipt Date: 20141020
  Transmission Date: 20150528
  Serious: No
  Sender: FDA-Public Use
  Company Number: US-ELI_LILLY_AND_COMPANY-US201409008535

PATIENT
  Age: 70 Year
  Sex: Male

DRUGS (3)
  1. CYRAMZA [Suspect]
     Active Substance: RAMUCIRUMAB
     Dosage: 800 MG, UNKNOWN
     Route: 042
     Dates: start: 20140923
  2. CYRAMZA [Suspect]
     Active Substance: RAMUCIRUMAB
     Dosage: 800 MG, UNKNOWN
     Route: 042
     Dates: start: 20140923
  3. CYRAMZA [Suspect]
     Active Substance: RAMUCIRUMAB
     Indication: OESOPHAGEAL CARCINOMA
     Dosage: 800 MG, UNKNOWN
     Route: 042
     Dates: start: 20140923

REACTIONS (1)
  - Infusion site extravasation [Unknown]
